FAERS Safety Report 11700402 (Version 1)
Quarter: 2015Q4

REPORT INFORMATION
  Report Type: Spontaneous
  Country: US (occurrence: None)
  Receive Date: 20151104
  Receipt Date: 20151104
  Transmission Date: 20160304
  Serious: Yes (Hospitalization)
  Sender: FDA-Public Use
  Company Number: DL2015-1222

PATIENT
  Age: 23 Year
  Sex: Female

DRUGS (3)
  1. AZITHROMYCIN [Concomitant]
     Active Substance: AZITHROMYCIN ANHYDROUS
  2. MIFEPRISTONE TABLETS, 200 MG (DANCO LABS) [Suspect]
     Active Substance: MIFEPRISTONE
     Indication: ABORTION INDUCED
     Route: 048
     Dates: start: 20150717
  3. MISOPROSTOL TABLETS, 200 MCG [Suspect]
     Active Substance: MISOPROSTOL
     Route: 002
     Dates: start: 20150718

REACTIONS (5)
  - Vomiting [None]
  - Hyperglycaemia [None]
  - Dehydration [None]
  - Anxiety [None]
  - Diabetic ketoacidosis [None]

NARRATIVE: CASE EVENT DATE: 20150718
